FAERS Safety Report 5502587-4 (Version None)
Quarter: 2007Q4

REPORT INFORMATION
  Report Type: 
  Country: None (occurrence: None)
  Receive Date: 20071031
  Receipt Date: 20071024
  Transmission Date: 20080405
  Serious: Yes (Other)
  Sender: FDA-Public Use
  Company Number: PHEH2006US10894

PATIENT
  Age: 60 Year
  Sex: Female

DRUGS (5)
  1. ZOMETA [Suspect]
     Indication: BREAST CANCER METASTATIC
     Dosage: 4 MG, QMO
     Dates: start: 20050601, end: 20060628
  2. FEMARA [Concomitant]
     Dosage: 2.5 MG, UNK
     Route: 048
     Dates: start: 20050601, end: 20060101
  3. AREDIA [Suspect]
  4. PROVENTIL [Concomitant]
     Dosage: 2 PUFFS PRN
  5. PAXIL [Concomitant]
     Dosage: 40 MG, QD
     Route: 048

REACTIONS (13)
  - ANXIETY [None]
  - BIOPSY [None]
  - BONE DENSITY DECREASED [None]
  - BREAST CANCER METASTATIC [None]
  - DYSPNOEA [None]
  - INJURY [None]
  - MUSCULOSKELETAL CHEST PAIN [None]
  - OSTEONECROSIS [None]
  - PAIN [None]
  - PAIN IN EXTREMITY [None]
  - PNEUMONIA [None]
  - RESORPTION BONE INCREASED [None]
  - TOOTH EXTRACTION [None]
